FAERS Safety Report 7474384-4 (Version None)
Quarter: 2011Q2

REPORT INFORMATION
  Report Type: 
  Country: None (occurrence: None)
  Receive Date: 20110511
  Receipt Date: 20110504
  Transmission Date: 20111010
  Serious: Yes (Other)
  Sender: FDA-Public Use
  Company Number: US-B.I. PHARMACEUTICALS,INC./RIDGEFIELD-2011-BP-06960BP

PATIENT
  Age: 83 Year
  Sex: Male

DRUGS (2)
  1. DIOVAN (GENERIC) [Concomitant]
  2. FLOMAX [Suspect]
     Dosage: 0.4 MG
     Dates: start: 20090101, end: 20110201

REACTIONS (7)
  - INSOMNIA [None]
  - LYMPHOMA [None]
  - WEIGHT DECREASED [None]
  - MUSCULAR WEAKNESS [None]
  - CYSTITIS [None]
  - DECREASED APPETITE [None]
  - BACK PAIN [None]
